FAERS Safety Report 25053979 (Version 1)
Quarter: 2025Q1

REPORT INFORMATION
  Report Type: Spontaneous
  Country: US (occurrence: US)
  Receive Date: 20250307
  Receipt Date: 20250307
  Transmission Date: 20250408
  Serious: No
  Sender: SANOFI AVENTIS
  Company Number: US-SA-2025SA065094

PATIENT
  Age: 24 Year
  Sex: Female

DRUGS (1)
  1. DUPIXENT [Suspect]
     Active Substance: DUPILUMAB
     Indication: Dermatitis atopic
     Dosage: 300 MG, QOW
     Route: 058
     Dates: start: 202411

REACTIONS (7)
  - Dark circles under eyes [Unknown]
  - Eyelid margin crusting [Unknown]
  - Eczema [Unknown]
  - Pruritus [Unknown]
  - Eye pruritus [Unknown]
  - Eye irritation [Unknown]
  - Dermatitis atopic [Unknown]
